FAERS Safety Report 24717580 (Version 1)
Quarter: 2024Q4

REPORT INFORMATION
  Report Type: Spontaneous
  Country: US (occurrence: US)
  Receive Date: 20241210
  Receipt Date: 20241210
  Transmission Date: 20250114
  Serious: No
  Sender: PFIZER
  Company Number: US-PFIZER INC-202400317317

PATIENT
  Age: 39 Year
  Sex: Male
  Weight: 111.13 kg

DRUGS (2)
  1. TESTOSTERONE CYPIONATE [Suspect]
     Active Substance: TESTOSTERONE CYPIONATE
     Indication: Hormone replacement therapy
     Dosage: 150 MG, WEEKLY
     Dates: start: 202403
  2. TESTOSTERONE CYPIONATE [Suspect]
     Active Substance: TESTOSTERONE CYPIONATE
     Indication: Blood testosterone decreased
     Dosage: 2000 MG IN 10 ML

REACTIONS (3)
  - Blood testosterone decreased [Unknown]
  - Product gel formation [Unknown]
  - Poor quality product administered [Unknown]
